FAERS Safety Report 13443020 (Version 1)
Quarter: 2017Q2

REPORT INFORMATION
  Report Type: Spontaneous
  Country: US (occurrence: US)
  Receive Date: 20170414
  Receipt Date: 20170414
  Transmission Date: 20170830
  Serious: No
  Sender: FDA-Public Use
  Company Number: US-TEVA-751439ACC

PATIENT
  Age: 32 Year
  Sex: Female
  Weight: 77.18 kg

DRUGS (2)
  1. IRON [Concomitant]
     Active Substance: IRON
     Indication: IRON DEFICIENCY
  2. TAKE ACTION [Suspect]
     Active Substance: LEVONORGESTREL
     Indication: POST COITAL CONTRACEPTION
     Dates: start: 20170301, end: 20170301

REACTIONS (1)
  - Nausea [Unknown]

NARRATIVE: CASE EVENT DATE: 20170301
